FAERS Safety Report 24305064 (Version 1)
Quarter: 2024Q3

REPORT INFORMATION
  Report Type: Spontaneous
  Country: US (occurrence: US)
  Receive Date: 20240911
  Receipt Date: 20240911
  Transmission Date: 20241017
  Serious: No
  Sender: NOVARTIS
  Company Number: US-002147023-NVSC2024US181467

PATIENT
  Sex: Female
  Weight: 53.07 kg

DRUGS (1)
  1. SCEMBLIX [Suspect]
     Active Substance: ASCIMINIB HYDROCHLORIDE
     Indication: Chronic myeloid leukaemia
     Dosage: 40 MG, Q12H (EVERY 12 HOURS)
     Route: 048
     Dates: start: 202408

REACTIONS (3)
  - Brain fog [Unknown]
  - Asthenia [Unknown]
  - Fatigue [Unknown]
